FAERS Safety Report 6267374-0 (Version None)
Quarter: 2009Q3

REPORT INFORMATION
  Report Type: 
  Country: None (occurrence: None)
  Receive Date: 20090710
  Receipt Date: 20090702
  Transmission Date: 20100115
  Serious: Yes (Other)
  Sender: FDA-Public Use
  Company Number: ADR6132009

PATIENT
  Sex: Female

DRUGS (5)
  1. CIPROFLOXACIN [Suspect]
     Dosage: 1000MG
  2. DAPTOMYCIN [Concomitant]
  3. NEORAL [Concomitant]
  4. RIFAMPICIN [Concomitant]
  5. FLUCONAZOLE [Concomitant]

REACTIONS (1)
  - DRUG INTERACTION [None]
